FAERS Safety Report 24881664 (Version 1)
Quarter: 2025Q1

REPORT INFORMATION
  Report Type: Spontaneous
  Country: GB (occurrence: GB)
  Receive Date: 20250124
  Receipt Date: 20250124
  Transmission Date: 20250408
  Serious: Yes (Other)
  Sender: TEVA
  Company Number: GB-MHRA-TPP18516992C9147082YC1737043050225

PATIENT
  Age: 67 Year
  Sex: Male
  Weight: 72 kg

DRUGS (15)
  1. CLOTRIMAZOLE [Suspect]
     Active Substance: CLOTRIMAZOLE
     Indication: Ill-defined disorder
     Route: 065
     Dates: start: 20250116
  2. BACLOFEN [Concomitant]
     Active Substance: BACLOFEN
     Indication: Ill-defined disorder
     Dosage: 10ML TWICE DAILY ( MORNING AND EVENING)
     Dates: start: 20240525
  3. ACETAMINOPHEN [Concomitant]
     Active Substance: ACETAMINOPHEN
     Indication: Ill-defined disorder
     Dosage: TAKE 1 OR 2 4 TIMES/DAY
     Route: 065
     Dates: start: 20240525
  4. NITROFURANTOIN [Concomitant]
     Active Substance: NITROFURANTOIN
     Indication: Ill-defined disorder
     Dosage: GIVE ONE AT NIGHT
     Route: 065
     Dates: start: 20240525
  5. TRIMETHOPRIM [Concomitant]
     Active Substance: TRIMETHOPRIM
     Indication: Ill-defined disorder
     Dosage: 20ML TWICE DAILY
     Route: 065
     Dates: start: 20241022, end: 20241030
  6. LACTULOSE [Concomitant]
     Active Substance: LACTULOSE
     Indication: Ill-defined disorder
     Dosage: 15ML TWICE DAILY PRN
     Route: 065
     Dates: start: 20240525
  7. LANSOPRAZOLE [Concomitant]
     Active Substance: LANSOPRAZOLE
     Indication: Ill-defined disorder
     Dosage: TAKE ONE ONCE DAILY IN THE MORNING VIA TUBE
     Route: 065
     Dates: start: 20240525
  8. ECONAZOLE [Concomitant]
     Active Substance: ECONAZOLE
     Indication: Ill-defined disorder
     Dosage: APPLY TWICE DAILY TO THE AFFECTED AREAS
     Route: 065
     Dates: start: 20250116
  9. ATORVASTATIN [Concomitant]
     Active Substance: ATORVASTATIN
     Indication: Ill-defined disorder
     Dosage: TAKE ONE DAILY
     Route: 065
     Dates: start: 20240525
  10. CYCLIZINE [Concomitant]
     Active Substance: CYCLIZINE
     Indication: Ill-defined disorder
     Route: 065
     Dates: start: 20241030, end: 20241129
  11. OCTENISAN [Concomitant]
     Indication: Ill-defined disorder
     Route: 065
     Dates: start: 20241114, end: 20241214
  12. CLOPIDOGREL [Concomitant]
     Active Substance: CLOPIDOGREL BISULFATE
     Indication: Ill-defined disorder
     Dosage: TAKE ONE ONCE DAILY IN THE MORNING VIA TUBE
     Route: 065
     Dates: start: 20240525
  13. LEVETIRACETAM [Concomitant]
     Active Substance: LEVETIRACETAM
     Indication: Ill-defined disorder
     Dosage: GIVE 2.5MLS (250MG) AT NIGHT VIA TUBE
     Route: 065
     Dates: start: 20240525
  14. LEVEMIR [Concomitant]
     Active Substance: INSULIN DETEMIR
     Indication: Ill-defined disorder
     Route: 065
     Dates: start: 20240525
  15. NOVORAPID [Concomitant]
     Active Substance: INSULIN ASPART
     Indication: Ill-defined disorder
     Route: 065
     Dates: start: 20240525

REACTIONS (1)
  - Drug hypersensitivity [Recovered/Resolved]

NARRATIVE: CASE EVENT DATE: 20250116
